FAERS Safety Report 10244395 (Version 1)
Quarter: 2014Q1

REPORT INFORMATION
  Report Type: Spontaneous
  Country: US (occurrence: None)
  Receive Date: 20140306
  Receipt Date: 20140306
  Transmission Date: 20141002
  Serious: Yes (Other)
  Sender: FDA-Public Use
  Company Number: 163-21880-13101386

PATIENT
  Age: 83 Year
  Sex: Female

DRUGS (24)
  1. REVLIMID (LENALIDOMIDE) (10 MILLIGRAM, CAPSULES) [Suspect]
     Indication: PLASMA CELL MYELOMA
     Route: 048
     Dates: start: 201309
  2. ZOMETA (ZOLEDRONIC ACID) (UNKNOWN) [Concomitant]
  3. DEXAMETHASONE (TABLETS) [Concomitant]
  4. ALLOPURINOL (TABLETS) [Concomitant]
  5. ASPIRIN (ACETYLSALICYLIC ACID) (TABLETS) [Concomitant]
  6. COLACE (DOCUSATE SODIUM) (CAPSULES) [Concomitant]
  7. DRISDOL (ERGOCALCIFEROL) (UNKNOWN) [Concomitant]
  8. DULCOLAX (BISACODYL) (TABLETS) [Concomitant]
  9. ELAVIL (AMITRIPTYLINE HYDROCHLORIDE) (UNKOWN) [Concomitant]
  10. ESTRACE (ESTRACIOL) (CREAM) [Concomitant]
  11. KLOR-CON (POTASSIUM CHLORIDE) (UNKNOWN) [Concomitant]
  12. MAXZIDE (DYAZIDE) (TABLETS) [Concomitant]
  13. METAMUCIL (METAMUCIL ^PROCTER + GAMBLE^) (UNKNOWN) [Concomitant]
  14. MILK OF MAGNESIA (MAGNESIUM HYDROXIDE) (SUSPENSION) [Concomitant]
  15. MULTIVITAMIN (MULTIVITAMINS) (UNKNOWN) [Concomitant]
  16. NABUMETONE (TALBETS) [Concomitant]
  17. PEPCID (FAMOTIDINE) (TABLETS) [Concomitant]
  18. SENOKOT (SENNA FRUIT) (TABLETS) [Concomitant]
  19. TOBREX (TOBRAMYCIN SULFATE) (EYE DROPS) [Concomitant]
  20. TRIAMTERENE-HYDROCHLOROTHIAZIDE (DYAZIDE) (CAPSULES) [Concomitant]
  21. TYLENOL (PARACETAMOL) (TABLETS) [Concomitant]
  22. VITAMIN B-12 (CYANOCOBALAMIN) (TABLETS) [Concomitant]
  23. FLU SHOT (INFLUENZA VIRUS VACCINE POLYVALENT) (INJECTION) [Concomitant]
  24. PNEUMOVAX VACCINE (PNEUMOCOCCAL VACCINE) (UNKNOWN) [Concomitant]

REACTIONS (1)
  - Paraesthesia [None]
